FAERS Safety Report 5834275-9 (Version None)
Quarter: 2008Q3

REPORT INFORMATION
  Report Type: 
  Country: None (occurrence: None)
  Receive Date: 20080731
  Receipt Date: 20080718
  Transmission Date: 20090109
  Serious: Yes (Hospitalization)
  Sender: FDA-Public Use
  Company Number: 236827J08USA

PATIENT
  Age: 45 Year
  Sex: Female
  Weight: 65.7716 kg

DRUGS (5)
  1. REBIF [Suspect]
     Indication: MULTIPLE SCLEROSIS
     Dosage: 44 MCG, 3 IN 1 WEEKS, SUBCUTANEOUS
     Dates: start: 20070919, end: 20080601
  2. REBIF [Suspect]
     Indication: MULTIPLE SCLEROSIS
     Dosage: 44 MCG, 3 IN 1 WEEKS, SUBCUTANEOUS
     Dates: start: 20080701
  3. BACLOFEN [Concomitant]
  4. ZANAFLEX [Concomitant]
  5. ZOLOFT [Concomitant]

REACTIONS (6)
  - ARTHRITIS INFECTIVE [None]
  - FALL [None]
  - HYPERTENSION [None]
  - JOINT INJURY [None]
  - JOINT STIFFNESS [None]
  - STAPHYLOCOCCAL INFECTION [None]
